FAERS Safety Report 21503316 (Version 2)
Quarter: 2022Q4

REPORT INFORMATION
  Report Type: Spontaneous
  Country: US (occurrence: US)
  Receive Date: 20221025
  Receipt Date: 20221219
  Transmission Date: 20230112
  Serious: Yes (Other)
  Sender: FDA-Public Use
  Company Number: US-BRISTOL-MYERS SQUIBB COMPANY-2022-126422

PATIENT
  Age: 75 Year
  Sex: Female
  Weight: 59.42 kg

DRUGS (2)
  1. POMALYST [Suspect]
     Active Substance: POMALIDOMIDE
     Indication: Plasma cell myeloma
     Dosage: 21D ON 7D OFF
     Route: 048
  2. POMALYST [Suspect]
     Active Substance: POMALIDOMIDE
     Dosage: 21D ON 7D OFF
     Route: 048
     Dates: start: 20221101, end: 20221201

REACTIONS (1)
  - Plasma cell myeloma [Not Recovered/Not Resolved]
